FAERS Safety Report 11771773 (Version 1)
Quarter: 2015Q4

REPORT INFORMATION
  Report Type: Spontaneous
  Country: US (occurrence: None)
  Receive Date: 20151123
  Receipt Date: 20151123
  Transmission Date: 20160304
  Serious: Yes (Other)
  Sender: FDA-Public Use
  Company Number: None

PATIENT
  Age: 31 Year
  Sex: Female
  Weight: 47.63 kg

DRUGS (1)
  1. MAXITROL [Suspect]
     Active Substance: DEXAMETHASONE\NEOMYCIN SULFATE\POLYMYXIN B SULFATE
     Indication: HYPERSENSITIVITY
     Route: 047

REACTIONS (2)
  - Visual impairment [None]
  - Diplopia [None]

NARRATIVE: CASE EVENT DATE: 20151012
